FAERS Safety Report 6788820-X (Version None)
Quarter: 2010Q2

REPORT INFORMATION
  Report Type: 
  Country: None (occurrence: None)
  Receive Date: 20100623
  Receipt Date: 20080522
  Transmission Date: 20101027
  Serious: No
  Sender: FDA-Public Use
  Company Number: US-PFIZER INC-2008044652

PATIENT
  Sex: Male
  Weight: 102.3 kg

DRUGS (6)
  1. GEODON [Suspect]
     Indication: PARANOIA
     Route: 048
     Dates: start: 20060101
  2. VYTORIN [Concomitant]
  3. BENICAR [Concomitant]
  4. LEXAPRO [Concomitant]
  5. BUPROPION HCL [Concomitant]
  6. KLONOPIN [Concomitant]

REACTIONS (1)
  - INSOMNIA [None]
